FAERS Safety Report 16683400 (Version 1)
Quarter: 2019Q3

REPORT INFORMATION
  Report Type: Spontaneous
  Country: US (occurrence: US)
  Receive Date: 20190807
  Receipt Date: 20190807
  Transmission Date: 20191007
  Serious: Yes (Hospitalization)
  Sender: FDA-Public Use
  Company Number: None

PATIENT
  Age: 65 Year
  Sex: Female

DRUGS (13)
  1. ALBUTEROL. [Concomitant]
     Active Substance: ALBUTEROL
  2. DOK [Concomitant]
     Active Substance: DOCUSATE SODIUM
  3. FORTEO [Suspect]
     Active Substance: TERIPARATIDE
     Indication: OSTEOPOROSIS
     Route: 058
     Dates: start: 20171120
  4. GABAPENTIN. [Concomitant]
     Active Substance: GABAPENTIN
  5. SODIUM CHLORIDE NEB [Concomitant]
  6. PROAIR HFA [Concomitant]
     Active Substance: ALBUTEROL SULFATE
  7. ROSUVASTATIN. [Concomitant]
     Active Substance: ROSUVASTATIN
  8. MELOXICAM. [Concomitant]
     Active Substance: MELOXICAM
  9. BRE ELLIPTA INH [Concomitant]
  10. BENZONATE CAP [Concomitant]
  11. PANTOPRAZOLE [Concomitant]
     Active Substance: PANTOPRAZOLE
  12. SPIRIVA [Concomitant]
     Active Substance: TIOTROPIUM BROMIDE MONOHYDRATE
  13. LEVOTHYROXIN [Concomitant]
     Active Substance: LEVOTHYROXINE

REACTIONS (1)
  - Lung operation [None]

NARRATIVE: CASE EVENT DATE: 20190730
